FAERS Safety Report 6098984-1 (Version None)
Quarter: 2009Q1

REPORT INFORMATION
  Report Type: 
  Country: None (occurrence: None)
  Receive Date: 20090302
  Receipt Date: 20090216
  Transmission Date: 20090719
  Serious: Yes (Hospitalization)
  Sender: FDA-Public Use
  Company Number: US-ROCHE-614898

PATIENT
  Age: 79 Year
  Sex: Female

DRUGS (1)
  1. BONIVA [Suspect]
     Indication: OSTEOPOROSIS
     Dosage: RECEIVED ONLY ONE DOSE
     Route: 065

REACTIONS (2)
  - FALL [None]
  - HIP FRACTURE [None]
